FAERS Safety Report 4582467-1 (Version None)
Quarter: 2005Q1

REPORT INFORMATION
  Report Type: 
  Country: None (occurrence: None)
  Receive Date: 20050215
  Receipt Date: 20050202
  Transmission Date: 20050727
  Serious: Yes (Death, Hospitalization)
  Sender: FDA-Public Use
  Company Number: 200510876US

PATIENT
  Sex: Male
  Weight: 40.9 kg

DRUGS (12)
  1. TAXOTERE [Suspect]
     Indication: NEOPLASM MALIGNANT
     Route: 042
     Dates: start: 20041111, end: 20041216
  2. RADIATION [Suspect]
     Indication: NEOPLASM MALIGNANT
     Dates: start: 20041111, end: 20041217
  3. IRESSA [Suspect]
     Indication: NEOPLASM MALIGNANT
     Dates: start: 20040916
  4. BACLOFEN [Concomitant]
     Dates: start: 20010101
  5. CHLORPHENIRAMINE MALEATE [Concomitant]
     Indication: HYPERSENSITIVITY
     Dates: start: 20010101
  6. DIPYRIDAMOLE [Concomitant]
     Dates: start: 20010101
  7. MAGNESIUM OXIDE [Concomitant]
     Dates: start: 20010101
  8. PLETAL [Concomitant]
     Dates: start: 20010101
  9. PROTONIX [Concomitant]
     Indication: GASTROOESOPHAGEAL REFLUX DISEASE
     Dates: start: 20010101
  10. TRAZODONE [Concomitant]
     Dates: start: 20030101
  11. DIAZEPAM [Concomitant]
     Indication: ANXIETY
     Dates: start: 20010101
  12. POTASSIUM CHLORIDE [Concomitant]
     Dates: start: 20041108

REACTIONS (10)
  - APHAGIA [None]
  - BLOOD PRESSURE DECREASED [None]
  - DEHYDRATION [None]
  - HEART RATE INCREASED [None]
  - LETHARGY [None]
  - MENTAL STATUS CHANGES [None]
  - MUCOSAL INFLAMMATION [None]
  - OESOPHAGITIS [None]
  - PNEUMONIA ASPIRATION [None]
  - UNRESPONSIVE TO VERBAL STIMULI [None]
